FAERS Safety Report 16327868 (Version 4)
Quarter: 2019Q2

REPORT INFORMATION
  Report Type: Spontaneous
  Country: US (occurrence: US)
  Receive Date: 20190518
  Receipt Date: 20190615
  Transmission Date: 20190711
  Serious: Yes (Other)
  Sender: FDA-Public Use
  Company Number: US-UNITED THERAPEUTICS-UNT-2019-008517

PATIENT
  Age: 65 Year
  Sex: Female
  Weight: 74.38 kg

DRUGS (6)
  1. ELIQUIS [Concomitant]
     Active Substance: APIXABAN
     Indication: PRODUCT USED FOR UNKNOWN INDICATION
     Dosage: UNK
     Route: 065
  2. TYVASO [Suspect]
     Active Substance: TREPROSTINIL
     Indication: PULMONARY ARTERIAL HYPERTENSION
     Dosage: 18-72 ?G, QID
     Dates: start: 20190502
  3. TYVASO [Suspect]
     Active Substance: TREPROSTINIL
     Dosage: 18-54 ?G, QID
  4. TADALAFIL. [Concomitant]
     Active Substance: TADALAFIL
     Indication: PRODUCT USED FOR UNKNOWN INDICATION
     Dosage: UNK
     Route: 065
  5. TYVASO [Suspect]
     Active Substance: TREPROSTINIL
     Indication: PULMONARY ARTERIAL HYPERTENSION
     Dosage: 18 ?G, QID
     Dates: start: 20190506
  6. TYVASO [Suspect]
     Active Substance: TREPROSTINIL
     Dosage: 24 ?G, QID

REACTIONS (10)
  - Portal hypertension [Unknown]
  - Oxygen saturation decreased [Recovering/Resolving]
  - Blood pressure decreased [Unknown]
  - Influenza like illness [Not Recovered/Not Resolved]
  - Oedema peripheral [Unknown]
  - Off label use [Unknown]
  - Weight increased [Unknown]
  - Headache [Unknown]
  - Hepatitis C [Unknown]
  - Pain [Unknown]

NARRATIVE: CASE EVENT DATE: 201905
